FAERS Safety Report 8223820-4 (Version None)
Quarter: 2012Q1

REPORT INFORMATION
  Report Type: 
  Country: None (occurrence: None)
  Receive Date: 20120316
  Receipt Date: 20120229
  Transmission Date: 20120608
  Serious: Yes (Life-Threatening, Hospitalization)
  Sender: FDA-Public Use
  Company Number: DSA_28381_2006

PATIENT
  Age: 79 Year
  Sex: Female
  Weight: 60 kg

DRUGS (11)
  1. HOKUNALIN /00654901/ [Concomitant]
  2. SEPAMIT-R [Concomitant]
  3. ZYRTEC [Concomitant]
  4. PEPCID [Concomitant]
  5. LORAZEPAM [Concomitant]
  6. FLUTICASONE PROPIONATE [Concomitant]
  7. UNIPHYL [Concomitant]
  8. ENALAPRIL MALEATE [Suspect]
     Indication: HYPERTENSION
     Dosage: (5 MG 1X/MORNING ORAL)
     Route: 048
     Dates: start: 19980901, end: 20050618
  9. LEVOFLOXACIN [Concomitant]
  10. LASIX [Concomitant]
  11. ONON [Concomitant]

REACTIONS (4)
  - ANGIOEDEMA [None]
  - RESPIRATORY ARREST [None]
  - OROPHARYNGEAL PAIN [None]
  - DEPRESSED LEVEL OF CONSCIOUSNESS [None]
